FAERS Safety Report 7680423-8 (Version None)
Quarter: 2011Q3

REPORT INFORMATION
  Report Type: 
  Country: None (occurrence: None)
  Receive Date: 20110812
  Receipt Date: 20110809
  Transmission Date: 20111222
  Serious: Yes (Other)
  Sender: FDA-Public Use
  Company Number: US-PFIZER INC-2010179900

PATIENT
  Sex: Female
  Weight: 88.4 kg

DRUGS (4)
  1. LIPITOR [Suspect]
     Indication: BLOOD CHOLESTEROL INCREASED
     Dosage: UNK
  2. LIPITOR [Suspect]
     Dosage: UNK
  3. ADVAIR DISKUS 100/50 [Concomitant]
     Dosage: UNK
  4. PAROXETINE [Concomitant]
     Indication: DEPRESSION
     Dosage: UNK

REACTIONS (1)
  - LIMB INJURY [None]
